FAERS Safety Report 7700101-6 (Version None)
Quarter: 2011Q3

REPORT INFORMATION
  Report Type: 
  Country: None (occurrence: None)
  Receive Date: 20110822
  Receipt Date: 20110812
  Transmission Date: 20111222
  Serious: Yes (Hospitalization)
  Sender: FDA-Public Use
  Company Number: US-JNJFOC-20110806950

PATIENT
  Sex: Male
  Weight: 65.6 kg

DRUGS (5)
  1. FERROUS GLUCONATE [Concomitant]
  2. METHOTREXATE [Concomitant]
     Indication: INFLAMMATORY BOWEL DISEASE
  3. REMICADE [Suspect]
     Indication: CROHN'S DISEASE
     Route: 042
     Dates: start: 20070801
  4. MESALAMINE [Concomitant]
     Indication: INFLAMMATORY BOWEL DISEASE
     Route: 048
  5. FOLIC ACID [Concomitant]

REACTIONS (1)
  - INTESTINAL STENOSIS [None]
